FAERS Safety Report 12679805 (Version 1)
Quarter: 2016Q3

REPORT INFORMATION
  Report Type: Report from Study
  Country: US (occurrence: US)
  Receive Date: 20160824
  Receipt Date: 20160824
  Transmission Date: 20161109
  Serious: Yes (Hospitalization)
  Sender: FDA-Public Use
  Company Number: US-ROCHE-1798938

PATIENT
  Sex: Female

DRUGS (20)
  1. XOLAIR [Suspect]
     Active Substance: OMALIZUMAB
     Indication: ASTHMA
     Route: 058
     Dates: start: 201510
  2. MAG-OX [Concomitant]
     Active Substance: MAGNESIUM OXIDE
     Route: 048
  3. PERFOROMIST [Concomitant]
     Active Substance: FORMOTEROL FUMARATE DIHYDRATE
     Dosage: 20MCG/2ML NEBULIZER SOLUTION-INHALE 2ML VIA NEBULI
     Route: 065
  4. XOLAIR [Suspect]
     Active Substance: OMALIZUMAB
     Indication: RESTRICTIVE PULMONARY DISEASE
  5. ALBUTEROL. [Concomitant]
     Active Substance: ALBUTEROL
     Indication: WHEEZING
     Dosage: AS NEEDED
     Route: 065
  6. XANAX [Concomitant]
     Active Substance: ALPRAZOLAM
  7. NEPHRO-VITE [Concomitant]
     Dosage: 60-300MG-MG-MCG,1 TAB EVERY EVENING
     Route: 048
  8. PRILOSEC [Concomitant]
     Active Substance: OMEPRAZOLE MAGNESIUM
     Route: 048
  9. ZYRTEC [Concomitant]
     Active Substance: CETIRIZINE HYDROCHLORIDE
     Route: 048
  10. ALBUTEROL. [Concomitant]
     Active Substance: ALBUTEROL
     Dosage: AS NEEDED
     Route: 065
  11. VITAMIN B12 [Concomitant]
     Active Substance: CYANOCOBALAMIN
     Route: 048
  12. XOLAIR [Suspect]
     Active Substance: OMALIZUMAB
     Indication: BLOOD IMMUNOGLOBULIN E INCREASED
     Route: 058
     Dates: start: 20160816
  13. DUONEB [Concomitant]
     Active Substance: ALBUTEROL SULFATE\IPRATROPIUM BROMIDE
     Dosage: 1-3 TIMES
     Route: 065
  14. BUDESONIDE. [Concomitant]
     Active Substance: BUDESONIDE
     Dosage: 4 TIMES
     Route: 065
  15. GLUCOSAMINE CHONDROITIN COMPLEX [Concomitant]
     Active Substance: CHONDROITIN SULFATE (BOVINE)\GLUCOSAMINE HYDROCHLORIDE
     Dosage: 500-400MG ,1 TABLET AS NEEDED.
     Route: 048
  16. VITAMIN A [Concomitant]
     Active Substance: VITAMIN A
     Route: 048
  17. EPIPEN [Concomitant]
     Active Substance: EPINEPHRINE
     Dosage: ONCE
     Route: 030
  18. PULMICORT TURBUHALER [Concomitant]
     Active Substance: BUDESONIDE
     Dosage: VIA NEBULIZER SOLUTION
     Route: 065
  19. PULMICORT TURBUHALER [Concomitant]
     Active Substance: BUDESONIDE
  20. ZANTAC [Concomitant]
     Active Substance: RANITIDINE HYDROCHLORIDE
     Route: 048

REACTIONS (20)
  - Ocular discomfort [Unknown]
  - Nervousness [Unknown]
  - Eosinophilia [Unknown]
  - Asthma [Unknown]
  - Fatigue [Unknown]
  - Blood immunoglobulin E increased [Unknown]
  - Malaise [Unknown]
  - Rash [Unknown]
  - Myalgia [Unknown]
  - Paraesthesia [Unknown]
  - Headache [Unknown]
  - Vision blurred [Unknown]
  - Nausea [Unknown]
  - Muscular weakness [Unknown]
  - Vomiting [Unknown]
  - Arthralgia [Unknown]
  - Back pain [Unknown]
  - Pruritus [Unknown]
  - Neoplasm [Unknown]
  - Glossodynia [Unknown]
